FAERS Safety Report 7376420-2 (Version None)
Quarter: 2011Q1

REPORT INFORMATION
  Report Type: 
  Country: None (occurrence: None)
  Receive Date: 20110325
  Receipt Date: 20110324
  Transmission Date: 20110831
  Serious: Yes (Other)
  Sender: FDA-Public Use
  Company Number: GB-ABBOTT-10P-167-0690330-00

PATIENT
  Age: 56 Year
  Sex: Female

DRUGS (5)
  1. ENALAPRIL MALEATE [Concomitant]
     Indication: PRODUCT USED FOR UNKNOWN INDICATION
  2. EPILIM TABLETS [Suspect]
     Route: 048
     Dates: start: 20100801
  3. METFORMIN HCL [Concomitant]
     Indication: PRODUCT USED FOR UNKNOWN INDICATION
  4. EPILIM TABLETS [Suspect]
     Indication: BIPOLAR DISORDER
     Route: 048
  5. PARACETAMOL [Concomitant]
     Indication: PRODUCT USED FOR UNKNOWN INDICATION

REACTIONS (2)
  - THROMBOCYTOPENIA [None]
  - PLATELET COUNT DECREASED [None]
